FAERS Safety Report 18733655 (Version 1)
Quarter: 2021Q1

REPORT INFORMATION
  Report Type: Spontaneous
  Country: US (occurrence: US)
  Receive Date: 20210113
  Receipt Date: 20210113
  Transmission Date: 20210419
  Serious: Yes (Life-Threatening, Hospitalization, Other)
  Sender: FDA-Public Use
  Company Number: US-AUROBINDO-AUR-APL-2021-000898

PATIENT
  Age: 48 Year
  Sex: Female

DRUGS (1)
  1. IBUPROFEN TABLETS [Suspect]
     Active Substance: IBUPROFEN
     Indication: ARTHRALGIA
     Dosage: 4 GRAM, ONCE A DAY (20)
     Route: 065

REACTIONS (9)
  - Renal tubular acidosis [Recovered/Resolved]
  - Intentional product misuse [Recovered/Resolved]
  - Transaminases increased [Recovered/Resolved]
  - Metabolic acidosis [Recovered/Resolved]
  - Cystitis escherichia [Recovered/Resolved]
  - Hypophosphataemia [Recovered/Resolved]
  - Hypokalaemia [Recovered/Resolved]
  - Overdose [Unknown]
  - Rhabdomyolysis [Recovered/Resolved]
